FAERS Safety Report 4750574-6 (Version None)
Quarter: 2005Q3

REPORT INFORMATION
  Report Type: 
  Country: None (occurrence: None)
  Receive Date: 20050818
  Receipt Date: 20050808
  Transmission Date: 20060218
  Serious: Yes (Death, Hospitalization)
  Sender: FDA-Public Use
  Company Number: GBWYE328210JAN05

PATIENT
  Age: 92 Year
  Sex: Female

DRUGS (3)
  1. ADVIL [Suspect]
     Indication: CHEST PAIN
     Dosage: 400 MG 4X PER 1 DAY ORAL
     Route: 048
     Dates: start: 20041202, end: 20041209
  2. PARACETAMOL (PARACETAMOL) [Concomitant]
  3. SENNA (SENNA) [Concomitant]

REACTIONS (4)
  - BLOOD CREATINE INCREASED [None]
  - CONSTIPATION [None]
  - DEHYDRATION [None]
  - PANCREATITIS [None]
